FAERS Safety Report 9098150 (Version 2)
Quarter: 2013Q3

REPORT INFORMATION
  Report Type: Report from Study
  Country: AU (occurrence: AU)
  Receive Date: 20130213
  Receipt Date: 20130822
  Transmission Date: 20140515
  Serious: Yes (Hospitalization)
  Sender: FDA-Public Use
  Company Number: AU-ELI_LILLY_AND_COMPANY-AU201302001568

PATIENT
  Sex: Female
  Weight: 71 kg

DRUGS (16)
  1. TERIPARATIDE [Suspect]
     Indication: OSTEOPOROSIS
     Dosage: 20 UG, QD
     Dates: start: 20130110, end: 20130117
  2. RABEPRAZOLE [Concomitant]
     Dosage: 20 MG, QD
  3. MIRTAZAPINE [Concomitant]
     Dosage: 15 MG, EACH EVENING
  4. OXAZEPAM [Concomitant]
     Dosage: 20 MG, EACH EVENING
  5. AMIODARONE [Concomitant]
     Dosage: 200 MG, QD
  6. PREDNISOLONE [Concomitant]
     Dosage: 5 MG, BID
  7. PANADOL OSTEO [Concomitant]
  8. METOCLOPRAMIDE [Concomitant]
     Dosage: 10 MG, TID
  9. PREGABALIN [Concomitant]
     Dosage: 75 MG, BID
  10. OXYCONTIN [Concomitant]
     Dosage: 10 MG, BID
  11. ONDANSETRON [Concomitant]
     Dosage: UNK, PRN
  12. LACTULOSE [Concomitant]
     Dosage: 20 ML, BID
  13. OXYCODONE [Concomitant]
     Dosage: UNK, PRN
  14. CHOLECALCIFEROL [Concomitant]
     Dosage: 2000 MG, QD
  15. AUGMENTIN                               /SCH/ [Concomitant]
  16. AMLODIPINE [Concomitant]
     Dosage: 5 MG, QD

REACTIONS (8)
  - Pancreatitis [Recovered/Resolved]
  - Altered state of consciousness [Recovered/Resolved]
  - Decreased appetite [Recovered/Resolved]
  - Musculoskeletal stiffness [Recovered/Resolved]
  - Fatigue [Recovered/Resolved]
  - Asthenia [Recovered/Resolved]
  - Pelvic mass [Unknown]
  - General physical health deterioration [Unknown]
